FAERS Safety Report 15138016 (Version 3)
Quarter: 2019Q4

REPORT INFORMATION
  Report Type: Spontaneous
  Country: US (occurrence: US)
  Receive Date: 20180712
  Receipt Date: 20191218
  Transmission Date: 20200122
  Serious: No
  Sender: FDA-Public Use
  Company Number: US-BIOGEN-2018BI00606852

PATIENT
  Sex: Male

DRUGS (1)
  1. TYSABRI [Suspect]
     Active Substance: NATALIZUMAB
     Indication: MULTIPLE SCLEROSIS
     Route: 050
     Dates: start: 20160107, end: 20170310

REACTIONS (6)
  - Fatigue [Unknown]
  - Abnormal dreams [Not Recovered/Not Resolved]
  - Cold sweat [Not Recovered/Not Resolved]
  - Laboratory test abnormal [Unknown]
  - Asthenia [Unknown]
  - Headache [Unknown]
